FAERS Safety Report 12990719 (Version 1)
Quarter: 2016Q4

REPORT INFORMATION
  Report Type: Spontaneous
  Country: US (occurrence: US)
  Receive Date: 20161130
  Receipt Date: 20161130
  Transmission Date: 20170207
  Serious: No
  Sender: FDA-Public Use
  Company Number: None

PATIENT
  Age: 67 Year
  Sex: Male
  Weight: 120.7 kg

DRUGS (1)
  1. METOPROLOL. [Suspect]
     Active Substance: METOPROLOL
     Dosage: MG BID PO
     Route: 048
     Dates: start: 20060217, end: 20140825

REACTIONS (1)
  - Bradycardia [None]

NARRATIVE: CASE EVENT DATE: 20140825
